FAERS Safety Report 18493954 (Version 2)
Quarter: 2020Q4

REPORT INFORMATION
  Report Type: Report from Study
  Country: FR (occurrence: FR)
  Receive Date: 20201111
  Receipt Date: 20201229
  Transmission Date: 20210114
  Serious: Yes (Hospitalization)
  Sender: FDA-Public Use
  Company Number: FR-BAXTER-2020BAX010199

PATIENT
  Age: 16 Year
  Sex: Male
  Weight: 39 kg

DRUGS (36)
  1. PENTACARINAT [Concomitant]
     Active Substance: PENTAMIDINE ISETHIONATE
     Indication: INFECTION PROPHYLAXIS
     Route: 042
     Dates: start: 20200129
  2. FORLAX [Concomitant]
     Active Substance: POLYETHYLENE GLYCOL 4000
     Indication: CONSTIPATION
     Dosage: DOSE 10 OR 20 MG
     Route: 048
     Dates: start: 20200122
  3. ALLOPURINOL. [Concomitant]
     Active Substance: ALLOPURINOL
     Indication: PROPHYLAXIS
     Route: 065
     Dates: start: 20200121, end: 20200130
  4. NIVESTIM [Concomitant]
     Active Substance: FILGRASTIM
     Indication: PROPHYLAXIS
     Dosage: DOSE: 30 MUI, 1 AMPULE Q2 DAYS, SUBCU INJECTION 10 DAYS EVERY 21 DAYS
     Route: 042
     Dates: start: 20200129
  5. SKENAN [Concomitant]
     Active Substance: MORPHINE SULFATE
     Indication: PELVIC PAIN
     Route: 048
     Dates: start: 20200126
  6. CELLTOP 100 MG/5 ML, SOLUTION INJECTABLE POUR PERFUSION [Suspect]
     Active Substance: ETOPOSIDE
     Indication: REFRACTORY CANCER
     Route: 065
     Dates: start: 20181001, end: 20181214
  7. TOPOTECAN HYDROCHLORIDE. [Suspect]
     Active Substance: TOPOTECAN HYDROCHLORIDE
     Indication: REFRACTORY CANCER
     Route: 042
     Dates: start: 20200518, end: 20200522
  8. TOPOTECAN HYDROCHLORIDE. [Suspect]
     Active Substance: TOPOTECAN HYDROCHLORIDE
     Indication: SOFT TISSUE SARCOMA
     Dosage: GIVEN FOR 4 DAYS EVERY 21 DAYS
     Route: 042
     Dates: start: 20200608
  9. PENTACARINAT [Concomitant]
     Active Substance: PENTAMIDINE ISETHIONATE
     Indication: NEURALGIA
     Dosage: 600 MG
     Route: 048
     Dates: start: 20200121
  10. PANTOPRAZOLE [Concomitant]
     Active Substance: PANTOPRAZOLE
     Indication: PROPHYLAXIS
     Route: 048
     Dates: start: 20200121
  11. ENDOXAN 1000 MG, POUDRE POUR SOLUTIONINJECTABLE [Suspect]
     Active Substance: CYCLOPHOSPHAMIDE
     Indication: REFRACTORY CANCER
     Route: 065
     Dates: start: 20160111, end: 20170111
  12. ENDOXAN 1000 MG, POUDRE POUR SOLUTIONINJECTABLE [Suspect]
     Active Substance: CYCLOPHOSPHAMIDE
     Indication: SOFT TISSUE SARCOMA
     Dosage: GIVEN FOR 5 DAYS EVERY 21 DAYS
     Route: 042
     Dates: start: 20200124, end: 20200424
  13. HOLOXAN 2000 MG, POUDRE POUR USAGE PARENTERAL [Suspect]
     Active Substance: IFOSFAMIDE
     Indication: RECURRENT CANCER
     Route: 065
     Dates: start: 20150403, end: 20150722
  14. CELLTOP 100 MG/5 ML, SOLUTION INJECTABLE POUR PERFUSION [Suspect]
     Active Substance: ETOPOSIDE
     Indication: SOFT TISSUE SARCOMA
  15. VENETOCLAX. [Suspect]
     Active Substance: VENETOCLAX
     Indication: SOFT TISSUE SARCOMA
  16. PREGABALINE [Concomitant]
     Active Substance: PREGABALIN
     Indication: NEURALGIA
     Dosage: 600 MG
     Route: 048
     Dates: start: 20200121
  17. DULOXETINE. [Concomitant]
     Active Substance: DULOXETINE
     Indication: NEURALGIA
     Route: 048
     Dates: start: 20200121
  18. FILGRASTIM [Concomitant]
     Active Substance: FILGRASTIM
     Indication: SUPPORTIVE CARE
     Dosage: 30 IUM, ON DAY 7 OF EACH COURSE AND CONTINUE TILL APLASIA OVER
     Route: 042
     Dates: start: 20200129
  19. FILGRASTIM [Concomitant]
     Active Substance: FILGRASTIM
     Dosage: 30 IUM, 1 IN 1 EVERY OTHER DAY
     Route: 058
     Dates: start: 20200129, end: 20200202
  20. DEXTROSE IN WATER [Concomitant]
     Active Substance: DEXTROSE\WATER
     Indication: PROPHYLAXIS
     Route: 042
     Dates: start: 20200121, end: 20200129
  21. SKENAN [Concomitant]
     Active Substance: MORPHINE SULFATE
     Indication: TUMOUR PAIN
  22. ENDOXAN 1000 MG, POUDRE POUR SOLUTIONINJECTABLE [Suspect]
     Active Substance: CYCLOPHOSPHAMIDE
     Route: 065
     Dates: start: 20180101, end: 20180701
  23. VENETOCLAX. [Suspect]
     Active Substance: VENETOCLAX
     Indication: RECURRENT CANCER
     Dosage: TABLET, DAYS 1-10 OF EACH 21-DAY CYCLE
     Route: 048
     Dates: start: 20200123
  24. SKENAN [Concomitant]
     Active Substance: MORPHINE SULFATE
     Indication: PELVIC MASS
  25. ENDOXAN 1000 MG, POUDRE POUR SOLUTIONINJECTABLE [Suspect]
     Active Substance: CYCLOPHOSPHAMIDE
     Indication: RECURRENT CANCER
     Route: 065
     Dates: start: 20150813, end: 20160107
  26. HOLOXAN 2000 MG, POUDRE POUR USAGE PARENTERAL [Suspect]
     Active Substance: IFOSFAMIDE
     Indication: REFRACTORY CANCER
  27. VENETOCLAX. [Suspect]
     Active Substance: VENETOCLAX
     Indication: REFRACTORY CANCER
     Dosage: TABLET
     Route: 048
     Dates: start: 20200122, end: 20200122
  28. CYMBALTA [Concomitant]
     Active Substance: DULOXETINE HYDROCHLORIDE
     Indication: NEURALGIA
     Route: 048
     Dates: start: 20200121
  29. FILGRASTIM [Concomitant]
     Active Substance: FILGRASTIM
     Dosage: 30 IUM
     Route: 058
     Dates: start: 20200203
  30. ENDOXAN 1000 MG, POUDRE POUR SOLUTIONINJECTABLE [Suspect]
     Active Substance: CYCLOPHOSPHAMIDE
     Route: 042
     Dates: start: 20200518, end: 20200522
  31. ENDOXAN 1000 MG, POUDRE POUR SOLUTIONINJECTABLE [Suspect]
     Active Substance: CYCLOPHOSPHAMIDE
     Dosage: GIVEN FOR 4 DAYS EVERY 21 DAYS
     Route: 042
     Dates: start: 20200608
  32. HOLOXAN 2000 MG, POUDRE POUR USAGE PARENTERAL [Suspect]
     Active Substance: IFOSFAMIDE
     Indication: SOFT TISSUE SARCOMA
  33. CELLTOP 100 MG/5 ML, SOLUTION INJECTABLE POUR PERFUSION [Suspect]
     Active Substance: ETOPOSIDE
     Indication: RECURRENT CANCER
     Route: 065
     Dates: start: 20150403, end: 20150722
  34. TOPOTECAN HYDROCHLORIDE. [Suspect]
     Active Substance: TOPOTECAN HYDROCHLORIDE
     Indication: RECURRENT CANCER
     Dosage: GIVEN FOR 5 DAYS EVERY 21 DAYS
     Route: 042
     Dates: start: 20200124, end: 20200424
  35. LYRICA [Concomitant]
     Active Substance: PREGABALIN
     Indication: NEURALGIA
     Dosage: 600 MG
     Route: 048
     Dates: start: 20200121
  36. HYDROCORTISONE. [Concomitant]
     Active Substance: HYDROCORTISONE
     Indication: SCIATICA
     Dosage: 7.5 MG MORNING AND 5 MG AT 12
     Route: 048
     Dates: start: 20200223

REACTIONS (3)
  - Febrile neutropenia [Recovered/Resolved]
  - Cystitis haemorrhagic [Recovered/Resolved]
  - Lung disorder [Recovered/Resolved]

NARRATIVE: CASE EVENT DATE: 20200504
